FAERS Safety Report 18842341 (Version 1)
Quarter: 2021Q1

REPORT INFORMATION
  Report Type: Spontaneous
  Country: US (occurrence: US)
  Receive Date: 20210204
  Receipt Date: 20210204
  Transmission Date: 20210419
  Serious: Yes (Other)
  Sender: FDA-Public Use
  Company Number: US-CADILA HEALTHCARE LIMITED-US-ZYDUS-061667

PATIENT

DRUGS (3)
  1. DEXMEDETOMIDINE. [Interacting]
     Active Substance: DEXMEDETOMIDINE
     Dosage: 1 MICROGRAM/KILOGRAM PER MIN
     Route: 065
  2. SUGAMMADEX [Interacting]
     Active Substance: SUGAMMADEX
     Indication: NEUROMUSCULAR BLOCKADE
     Dosage: 4 MILLIGRAM/KILOGRAM
     Route: 065
  3. DEXMEDETOMIDINE. [Suspect]
     Active Substance: DEXMEDETOMIDINE
     Indication: PRODUCT USED FOR UNKNOWN INDICATION
     Dosage: 1 MICROGRAM/KILOGRAM PER MIN
     Route: 065

REACTIONS (2)
  - Drug interaction [Unknown]
  - Recurrence of neuromuscular blockade [Unknown]
